FAERS Safety Report 5814716-3 (Version None)
Quarter: 2008Q3

REPORT INFORMATION
  Report Type: 
  Country: None (occurrence: None)
  Receive Date: 20080718
  Receipt Date: 20070830
  Transmission Date: 20090109
  Serious: No
  Sender: FDA-Public Use
  Company Number: US-KINGPHARMUSA00001-K200701128

PATIENT

DRUGS (4)
  1. LEVOXYL [Suspect]
     Indication: HYPOTHYROIDISM
     Dosage: UNK, UNK
  2. LEVOXYL [Suspect]
     Dosage: 44 MCG, QD
     Route: 048
     Dates: start: 20050101, end: 20070710
  3. LEVOXYL [Suspect]
     Dosage: 50 MCG, QD
     Route: 048
     Dates: start: 20070710, end: 20070806
  4. LEVOXYL [Suspect]
     Dosage: 88 MCG, QD
     Route: 048
     Dates: start: 20070807

REACTIONS (2)
  - INSOMNIA [None]
  - PALPITATIONS [None]
